FAERS Safety Report 6645807-5 (Version None)
Quarter: 2010Q1

REPORT INFORMATION
  Report Type: 
  Country: None (occurrence: None)
  Receive Date: 20100323
  Receipt Date: 20100316
  Transmission Date: 20100710
  Serious: Yes (Life-Threatening, Hospitalization)
  Sender: FDA-Public Use
  Company Number: GB-ELI_LILLY_AND_COMPANY-GB201003004049

PATIENT
  Age: 61 Year
  Sex: Female
  Weight: 105.5 kg

DRUGS (11)
  1. BYETTA [Suspect]
     Dosage: 10 UG, 2/D
     Route: 058
     Dates: start: 20080223, end: 20100116
  2. ATENOLOL [Concomitant]
     Dosage: 50 MG, DAILY (1/D)
     Route: 065
  3. BENDROFLUAZIDE [Concomitant]
     Dosage: 2.5 MG, UNKNOWN
     Route: 065
  4. DOTHIEPIN HYDROCHLORIDE [Concomitant]
     Dosage: 75 MEQ, DAILY (1/D)
     Route: 065
  5. EZETROL [Concomitant]
     Dosage: 10 MG, DAILY (1/D)
     Route: 065
  6. LIPITOR [Concomitant]
     Dosage: 40 MG, DAILY (1/D)
     Route: 065
  7. LOSEC [Concomitant]
     Dosage: 20 MG, DAILY (1/D)
     Route: 065
  8. METFORMIN HCL [Concomitant]
     Dosage: UNK, UNKNOWN
     Route: 065
  9. NICORANDIL [Concomitant]
     Dosage: 20 MG, 2/D
     Route: 065
  10. RAMIPRIL [Concomitant]
     Dosage: 10 MG, DAILY (1/D)
     Route: 065
  11. SPIRONOLACTONE [Concomitant]
     Dosage: 25 MG, DAILY (1/D)
     Route: 065

REACTIONS (3)
  - ABDOMINAL PAIN [None]
  - PANCREATIC CARCINOMA METASTATIC [None]
  - WEIGHT DECREASED [None]
